FAERS Safety Report 5218016-4 (Version None)
Quarter: 2007Q1

REPORT INFORMATION
  Report Type: 
  Country: None (occurrence: None)
  Receive Date: 20061130
  Receipt Date: 20060922
  Transmission Date: 20070707
  Serious: Yes (Hospitalization)
  Sender: FDA-Public Use
  Company Number: US200607001333

PATIENT
  Age: 32 Year
  Sex: Female
  Weight: 81.6 kg

DRUGS (1)
  1. ZYPREXA [Suspect]
     Indication: NERVOUSNESS
     Dosage: 20 MG, ORAL
     Route: 048
     Dates: start: 20040101, end: 20050101

REACTIONS (2)
  - DIABETES MELLITUS [None]
  - HYPERTENSION [None]
